FAERS Safety Report 12467303 (Version 2)
Quarter: 2016Q3

REPORT INFORMATION
  Report Type: Spontaneous
  Country: US (occurrence: US)
  Receive Date: 20160615
  Receipt Date: 20160705
  Transmission Date: 20161109
  Serious: No
  Sender: FDA-Public Use
  Company Number: US-PFIZER INC-2016266562

PATIENT
  Age: 5 Year
  Sex: Male
  Weight: 21 kg

DRUGS (2)
  1. ETHOSUXIMIDE. [Suspect]
     Active Substance: ETHOSUXIMIDE
     Indication: EPILEPSY
     Dosage: 250MG, 2X/DAY 1 CAPSULE IN THE MORNING AND 1 CAPSULE BEFORE BED
     Dates: start: 20160308
  2. DIVALPROEX [Concomitant]
     Active Substance: DIVALPROEX SODIUM
     Indication: EPILEPSY
     Dosage: 500 MG, 2X/DAY (125 MG 4 CAPSULES IN MORNING AND 4 CAPSULES IN THE AFTERNOON)
     Route: 048
     Dates: start: 2015, end: 20160314

REACTIONS (2)
  - Drug effect incomplete [Unknown]
  - Fatigue [Unknown]
